FAERS Safety Report 5369791-X (Version None)
Quarter: 2007Q2

REPORT INFORMATION
  Report Type: 
  Country: None (occurrence: None)
  Receive Date: 20070621
  Receipt Date: 20070606
  Transmission Date: 20071010
  Serious: Yes (Other)
  Sender: FDA-Public Use
  Company Number: 2007-02765

PATIENT
  Sex: Female

DRUGS (3)
  1. DIETHYLPROPION (DIETHYLPROPION HYDROCHLORIDE) TABLET, 25MG [Suspect]
     Indication: DRUG USE FOR UNKNOWN INDICATION
     Dosage: ORAL
     Route: 048
  2. DIETHYLPROPION HYDROCHLORIDE [Suspect]
     Dosage: ORAL
     Route: 048
  3. DIETHYLPROPION HYDROCHLORIDE [Suspect]

REACTIONS (1)
  - DEPRESSION SUICIDAL [None]
